FAERS Safety Report 9746682 (Version 1)
Quarter: 2013Q4

REPORT INFORMATION
  Report Type: Report from Study
  Country: FR (occurrence: FR)
  Receive Date: 20131211
  Receipt Date: 20131211
  Transmission Date: 20140711
  Serious: Yes (Hospitalization, Other)
  Sender: FDA-Public Use
  Company Number: PHHY2013FR142970

PATIENT
  Age: 67 Year
  Sex: Male

DRUGS (3)
  1. CERTICAN [Suspect]
     Indication: RENAL TRANSPLANT
     Dosage: 0.5 MG, QD
     Route: 048
     Dates: start: 20130405
  2. MYCOPHENOLATE MOFETIL [Suspect]
     Indication: RENAL TRANSPLANT
     Dosage: 2 G, QD
     Route: 048
     Dates: start: 20130321
  3. SOLUPRED//PREDNISOLONE METASULFOBENZOATE SODIUM [Suspect]
     Dosage: 20 MG, QD
     Route: 048
     Dates: start: 20130322

REACTIONS (4)
  - Renal failure acute [Recovered/Resolved]
  - Normochromic normocytic anaemia [Recovered/Resolved]
  - Abdominal strangulated hernia [Recovered/Resolved]
  - Effusion [Recovered/Resolved]
